FAERS Safety Report 9513625 (Version 1)
Quarter: 2013Q3

REPORT INFORMATION
  Report Type: Spontaneous
  Country: US (occurrence: US)
  Receive Date: 20130910
  Receipt Date: 20130910
  Transmission Date: 20140515
  Serious: Yes (Hospitalization)
  Sender: FDA-Public Use
  Company Number: US-BAYER-2013-108281

PATIENT
  Sex: 0

DRUGS (2)
  1. BAYER ASPIRIN REGIMEN ADULT LOW STRENGTH [Suspect]
  2. SYNTHROID [Suspect]
     Dosage: UNK
     Dates: start: 2013

REACTIONS (13)
  - Urticaria [None]
  - Blood pressure increased [None]
  - Atrial fibrillation [None]
  - Hypersensitivity [None]
  - Dehydration [None]
  - Nausea [None]
  - Decreased appetite [None]
  - Gastritis erosive [None]
  - Pruritus [None]
  - Swollen tongue [None]
  - Pain [None]
  - Vision blurred [None]
  - Back pain [None]
